FAERS Safety Report 20044986 (Version 2)
Quarter: 2021Q4

REPORT INFORMATION
  Report Type: Spontaneous
  Country: US (occurrence: US)
  Receive Date: 20211108
  Receipt Date: 20211125
  Transmission Date: 20220303
  Serious: No
  Sender: FDA-Public Use
  Company Number: US-GW PHARMA-202110USGW05317

PATIENT

DRUGS (4)
  1. EPIDIOLEX [Suspect]
     Active Substance: CANNABIDIOL
     Indication: Lennox-Gastaut syndrome
     Dosage: 50 MILLIGRAM, BID, 60 DOSES TOTAL 30 ML (FIRST SHIPPED ON 27 SEP 2021)
     Route: 048
     Dates: start: 20211002, end: 2021
  2. EPIDIOLEX [Suspect]
     Active Substance: CANNABIDIOL
     Dosage: 50 MILLIGRAM, BID (FIRST SHIPPED ON 25 OCT 2021)
     Route: 048
     Dates: start: 2021
  3. LAMOTRIGINE [Concomitant]
     Active Substance: LAMOTRIGINE
     Indication: Product used for unknown indication
     Dosage: UNK
     Route: 065
  4. CLOBAZAM [Concomitant]
     Active Substance: CLOBAZAM
     Indication: Product used for unknown indication
     Dosage: UNK
     Route: 065

REACTIONS (10)
  - Dysarthria [Recovering/Resolving]
  - Fall [Recovering/Resolving]
  - Feeling drunk [Recovering/Resolving]
  - Tremor [Recovering/Resolving]
  - Gait disturbance [Recovering/Resolving]
  - Irritability [Recovering/Resolving]
  - Product supply issue [Unknown]
  - Product dose omission issue [Unknown]
  - Product container issue [Unknown]
  - Product packaging quantity issue [Unknown]

NARRATIVE: CASE EVENT DATE: 20211001
